FAERS Safety Report 20058297 (Version 1)
Quarter: 2021Q4

REPORT INFORMATION
  Report Type: Report from Study
  Country: CO (occurrence: CO)
  Receive Date: 20211111
  Receipt Date: 20211111
  Transmission Date: 20220303
  Serious: Yes (Hospitalization)
  Sender: FDA-Public Use
  Company Number: CO-KYOWAKIRIN-2021BKK019120

PATIENT

DRUGS (30)
  1. CRYSVITA [Suspect]
     Active Substance: BUROSUMAB-TWZA
     Indication: Hereditary hypophosphataemic rickets
     Dosage: 50 MG,1 IN 1 M
     Route: 058
     Dates: start: 20210921
  2. CRYSVITA [Suspect]
     Active Substance: BUROSUMAB-TWZA
     Dosage: 50 MG,1 IN 1 M
     Route: 058
     Dates: start: 20210921
  3. CRYSVITA [Suspect]
     Active Substance: BUROSUMAB-TWZA
     Dosage: 50 MG,1 IN 1 M
     Route: 058
     Dates: start: 20210820, end: 20210820
  4. CRYSVITA [Suspect]
     Active Substance: BUROSUMAB-TWZA
     Dosage: 50 MG,1 IN 1 M
     Route: 058
     Dates: start: 20210820, end: 20210820
  5. CRYSVITA [Suspect]
     Active Substance: BUROSUMAB-TWZA
     Dosage: 50 MG,1 IN 1 M
     Route: 058
     Dates: start: 20210721, end: 20210721
  6. CRYSVITA [Suspect]
     Active Substance: BUROSUMAB-TWZA
     Dosage: 50 MG,1 IN 1 M
     Route: 058
     Dates: start: 20210721, end: 20210721
  7. CRYSVITA [Suspect]
     Active Substance: BUROSUMAB-TWZA
     Dosage: 50 MG,1 IN 1 M
     Route: 058
     Dates: start: 20210621, end: 20210621
  8. CRYSVITA [Suspect]
     Active Substance: BUROSUMAB-TWZA
     Dosage: 50 MG,1 IN 1 M
     Route: 058
     Dates: start: 20210621, end: 20210621
  9. CRYSVITA [Suspect]
     Active Substance: BUROSUMAB-TWZA
     Dosage: 50 MG,1 IN 1 M
     Route: 058
     Dates: start: 20210521, end: 20210521
  10. CRYSVITA [Suspect]
     Active Substance: BUROSUMAB-TWZA
     Dosage: 50 MG,1 IN 1 M
     Route: 058
     Dates: start: 20210521, end: 20210521
  11. CRYSVITA [Suspect]
     Active Substance: BUROSUMAB-TWZA
     Dosage: 50 MG,1 IN 1 M
     Route: 058
     Dates: start: 20210421, end: 20210421
  12. CRYSVITA [Suspect]
     Active Substance: BUROSUMAB-TWZA
     Dosage: 50 MG,1 IN 1 M
     Route: 058
     Dates: start: 20210421, end: 20210421
  13. CRYSVITA [Suspect]
     Active Substance: BUROSUMAB-TWZA
     Dosage: 50 MG,1 IN 1 M
     Route: 058
     Dates: start: 20210316, end: 20210316
  14. CRYSVITA [Suspect]
     Active Substance: BUROSUMAB-TWZA
     Dosage: 50 MG,1 IN 1 M
     Route: 058
     Dates: start: 20210316, end: 20210316
  15. CRYSVITA [Suspect]
     Active Substance: BUROSUMAB-TWZA
     Dosage: 50 MG,1 IN 1 M
     Route: 058
     Dates: start: 20210216, end: 20210216
  16. CRYSVITA [Suspect]
     Active Substance: BUROSUMAB-TWZA
     Dosage: 50 MG,1 IN 1 M
     Route: 058
     Dates: start: 20210216, end: 20210216
  17. CRYSVITA [Suspect]
     Active Substance: BUROSUMAB-TWZA
     Dosage: 50 MG,1 IN 1 M
     Route: 058
     Dates: start: 20210118, end: 20210118
  18. CRYSVITA [Suspect]
     Active Substance: BUROSUMAB-TWZA
     Dosage: 50 MG,1 IN 1 M
     Route: 058
     Dates: start: 20210118, end: 20210118
  19. CRYSVITA [Suspect]
     Active Substance: BUROSUMAB-TWZA
     Dosage: 50 MG,1 IN 1 M
     Route: 058
     Dates: start: 20201211, end: 20201211
  20. CRYSVITA [Suspect]
     Active Substance: BUROSUMAB-TWZA
     Dosage: 50 MG,1 IN 1 M
     Route: 058
     Dates: start: 20201211, end: 20201211
  21. CRYSVITA [Suspect]
     Active Substance: BUROSUMAB-TWZA
     Dosage: 50 MG,1 IN 1 M
     Route: 058
     Dates: start: 20201113, end: 20201113
  22. CRYSVITA [Suspect]
     Active Substance: BUROSUMAB-TWZA
     Dosage: 50 MG,1 IN 1 M
     Route: 058
     Dates: start: 20201113, end: 20201113
  23. CRYSVITA [Suspect]
     Active Substance: BUROSUMAB-TWZA
     Dosage: 50 MG,1 IN 1 M
     Route: 058
     Dates: start: 20201016, end: 20201016
  24. CRYSVITA [Suspect]
     Active Substance: BUROSUMAB-TWZA
     Dosage: 50 MG,1 IN 1 M
     Route: 058
     Dates: start: 20201016, end: 20201016
  25. CRYSVITA [Suspect]
     Active Substance: BUROSUMAB-TWZA
     Dosage: 50 MG,1 IN 1 M
     Route: 058
     Dates: start: 20200903, end: 20200903
  26. CRYSVITA [Suspect]
     Active Substance: BUROSUMAB-TWZA
     Dosage: 50 MG,1 IN 1 M
     Route: 058
     Dates: start: 20200903, end: 20200903
  27. CRYSVITA [Suspect]
     Active Substance: BUROSUMAB-TWZA
     Dosage: 50 MG,1 IN 1 M
     Route: 058
     Dates: start: 20200803, end: 20200803
  28. CRYSVITA [Suspect]
     Active Substance: BUROSUMAB-TWZA
     Dosage: 50 MG,1 IN 1 M
     Route: 058
     Dates: start: 20200803, end: 20200803
  29. CRYSVITA [Suspect]
     Active Substance: BUROSUMAB-TWZA
     Dosage: 50 MG,1 IN 1 M
     Route: 058
     Dates: start: 20200702, end: 20200702
  30. CRYSVITA [Suspect]
     Active Substance: BUROSUMAB-TWZA
     Dosage: 50 MG,1 IN 1 M
     Route: 058
     Dates: start: 20200702, end: 20200702

REACTIONS (1)
  - Cholelithiasis [Recovered/Resolved]

NARRATIVE: CASE EVENT DATE: 20211025
